FAERS Safety Report 16968114 (Version 1)
Quarter: 2019Q4

REPORT INFORMATION
  Report Type: Report from Study
  Country: CA (occurrence: CA)
  Receive Date: 20191028
  Receipt Date: 20191028
  Transmission Date: 20200122
  Serious: Yes (Hospitalization)
  Sender: FDA-Public Use
  Company Number: CA-ACTELION-A-US2019-197448

PATIENT
  Sex: Female

DRUGS (16)
  1. VITAMIN B12 [Concomitant]
     Active Substance: CYANOCOBALAMIN
  2. JANUVIA [Concomitant]
     Active Substance: SITAGLIPTIN PHOSPHATE
  3. DOMPERIDONE [Concomitant]
     Active Substance: DOMPERIDONE
  4. ALLOPURINOL. [Concomitant]
     Active Substance: ALLOPURINOL
  5. VALSARTAN. [Concomitant]
     Active Substance: VALSARTAN
  6. SILDENAFIL. [Concomitant]
     Active Substance: SILDENAFIL
  7. ATENOLOL. [Concomitant]
     Active Substance: ATENOLOL
  8. AMLODIPINE [Concomitant]
     Active Substance: AMLODIPINE BESYLATE
     Dosage: UNK
  9. PANTOPRAZOLE [Concomitant]
     Active Substance: PANTOPRAZOLE
  10. GLICLAZIDE MR STADA [Concomitant]
  11. ASA [Concomitant]
     Active Substance: ASPIRIN
     Dosage: 81 MG
  12. FOLIC ACID. [Concomitant]
     Active Substance: FOLIC ACID
  13. SYNTHROID [Concomitant]
     Active Substance: LEVOTHYROXINE SODIUM
  14. CARIPUL [Suspect]
     Active Substance: EPOPROSTENOL
     Indication: PULMONARY ARTERIAL HYPERTENSION
     Dosage: 30000 NG/ML, PER MIN
     Route: 042
     Dates: start: 20181003
  15. SIMVASTATIN. [Concomitant]
     Active Substance: SIMVASTATIN
  16. VITALUX [Concomitant]
     Active Substance: MINERALS\VITAMINS

REACTIONS (3)
  - Decreased appetite [Unknown]
  - Taste disorder [Unknown]
  - Hospitalisation [Not Recovered/Not Resolved]
